FAERS Safety Report 8854262 (Version 1)
Quarter: 2012Q4

REPORT INFORMATION
  Report Type: Spontaneous
  Country: US (occurrence: None)
  Receive Date: 20121018
  Receipt Date: 20121018
  Transmission Date: 20130627
  Serious: Yes (Hospitalization)
  Sender: FDA-Public Use
  Company Number: AUR-APL-2012-04366

PATIENT
  Age: 53 Year
  Sex: Male
  Weight: 76.64 kg

DRUGS (15)
  1. METOPROLOL [Suspect]
     Indication: DRUG USE FOR UNKNOWN INDICATION
     Dates: start: 20120125, end: 20120316
  2. METOPROLOL [Suspect]
     Indication: DRUG USE FOR UNKNOWN INDICATION
  3. CYCLOSPORINE [Suspect]
     Indication: IMMUNOSUPPRESSION
     Route: 048
     Dates: start: 20080724
  4. CYCLOSPORINE [Suspect]
     Indication: IMMUNOSUPPRESSION
     Route: 048
  5. AMLODIPINE BESILATE [Concomitant]
  6. LOSARTAN POTASSIUM (LOSARTAN POTASSIUM) [Concomitant]
  7. HYDROCHLOROTHIAZIDE (HYDROCHLOROTHIAZIDE) [Concomitant]
  8. CLONIDINE HYDROCHLORIDE (CLONIDINE HYDROCHLORIDE) [Concomitant]
  9. ACETYLLSALICYLIC ACID (ACETYLSALICYLIC ACID) [Suspect]
  10. PREDNISONE (PREDNISONE) [Concomitant]
  11. CELLCEPT (MYCOPHENOLATE MOFETIL) [Concomitant]
  12. TEGRETOL (CARBAMAZEPINE) [Concomitant]
  13. OMEPRAZOLE (OMEPRAZOLE) [Concomitant]
  14. PRAVASTATIN SODIUM (PRAVASTATIN SODIUM) [Concomitant]
  15. FERROUS SULFATE (FERROUS SULFATE) [Concomitant]

REACTIONS (8)
  - Syncope [None]
  - Dehydration [None]
  - Hypotension [None]
  - Fall [None]
  - Dizziness postural [None]
  - Excoriation [None]
  - Sinus bradycardia [None]
  - Pulmonary congestion [None]
